FAERS Safety Report 12368457 (Version 1)
Quarter: 2016Q2

REPORT INFORMATION
  Report Type: Spontaneous
  Country: GB (occurrence: GB)
  Receive Date: 20160513
  Receipt Date: 20160513
  Transmission Date: 20160815
  Serious: Yes (Other)
  Sender: FDA-Public Use
  Company Number: GB-009507513-1605GBR003754

PATIENT
  Sex: Female

DRUGS (1)
  1. NEXPLANON [Suspect]
     Active Substance: ETONOGESTREL
     Indication: CONTRACEPTION
     Route: 059

REACTIONS (9)
  - Headache [Unknown]
  - Alopecia [Recovered/Resolved]
  - Depression [Recovered/Resolved]
  - Hypoaesthesia [Unknown]
  - Personality change [Unknown]
  - Anxiety [Recovered/Resolved]
  - Contusion [Unknown]
  - Complication associated with device [Recovered/Resolved]
  - Blindness [Unknown]
